FAERS Safety Report 24683087 (Version 1)
Quarter: 2024Q4

REPORT INFORMATION
  Report Type: Spontaneous
  Country: US (occurrence: US)
  Receive Date: 20241201
  Receipt Date: 20241201
  Transmission Date: 20250115
  Serious: No
  Sender: ALEXION PHARMACEUTICALS
  Company Number: US-AstraZeneca-CH-00755093A

PATIENT
  Age: 62 Year

DRUGS (4)
  1. FASENRA [Suspect]
     Active Substance: BENRALIZUMAB
     Dosage: UNK
     Route: 065
  2. FASENRA [Suspect]
     Active Substance: BENRALIZUMAB
     Dosage: UNK
  3. FASENRA [Suspect]
     Active Substance: BENRALIZUMAB
     Dosage: UNK
     Route: 065
  4. FASENRA [Suspect]
     Active Substance: BENRALIZUMAB
     Dosage: UNK

REACTIONS (2)
  - Product dose omission issue [Unknown]
  - Hypoaesthesia [Recovering/Resolving]
